FAERS Safety Report 9105983 (Version 1)
Quarter: 2013Q1

REPORT INFORMATION
  Report Type: Spontaneous
  Country: US (occurrence: US)
  Receive Date: 20130220
  Receipt Date: 20130220
  Transmission Date: 20140127
  Serious: Yes (Hospitalization, Other)
  Sender: FDA-Public Use
  Company Number: US-ELI_LILLY_AND_COMPANY-US201302004064

PATIENT
  Sex: Female

DRUGS (17)
  1. FORTEO [Suspect]
     Indication: OSTEOPOROSIS
     Dosage: 20 UG, QD
     Dates: start: 201111, end: 201209
  2. FORTEO [Suspect]
     Dosage: 20 UG, QD
     Dates: start: 201301
  3. SYNTHROID [Concomitant]
     Dosage: 75 DF, EACH MORNING
  4. METFORMIN [Concomitant]
     Indication: DIABETES MELLITUS
     Dosage: 500 MG, BID
  5. BUMEX [Concomitant]
     Indication: HYPERTENSION
     Dosage: 0.5 MG, EACH MORNING
  6. POTASSIUM CHLORIDE [Concomitant]
     Dosage: 20 MEQ, EACH MORNING
  7. ASPIRIN [Concomitant]
     Dosage: 81 MG, UNKNOWN
  8. AMLODIPINE [Concomitant]
     Dosage: 5 MG, QD
  9. LEXAPRO [Concomitant]
     Dosage: 5 MG, QD
  10. CRESTOR [Concomitant]
     Dosage: 5 MG, QD
  11. METOPROLOL TARTRATE [Concomitant]
     Dosage: 1 TABLET, BID
  12. FERREX [Concomitant]
     Dosage: 1 TABLET, QD
  13. LOVAZA [Concomitant]
     Dosage: 4 G, QD
  14. DEPLIN [Concomitant]
     Dosage: 15 MG, QD
  15. CALCIUM CITRATE W/VITAMIN D NOS [Concomitant]
     Dosage: 2 DF, QD
  16. VITAMIN D [Concomitant]
     Dosage: 1000 DF, UNKNOWN
  17. PRESERVISION EYE VITAMIN AND MINERAL SUPPL. [Concomitant]
     Dosage: 2 TABLETS, QD

REACTIONS (5)
  - Aortic disorder [Unknown]
  - Adrenal mass [Unknown]
  - Adrenocortical insufficiency acute [Unknown]
  - Femoral artery occlusion [Unknown]
  - Cardiac murmur [Unknown]
